FAERS Safety Report 4550000-6 (Version None)
Quarter: 2005Q1

REPORT INFORMATION
  Report Type: 
  Country: None (occurrence: None)
  Receive Date: 20050110
  Receipt Date: 20041223
  Transmission Date: 20050727
  Serious: Yes (Death, Hospitalization, Other)
  Sender: FDA-Public Use
  Company Number: A-US2004-08448

PATIENT
  Age: 72 Year
  Sex: Female
  Weight: 78 kg

DRUGS (8)
  1. TRACLEER [Suspect]
     Indication: PULMONARY HYPERTENSION
     Dosage: 125 MG, BID, ORAL
     Route: 048
     Dates: start: 20030708
  2. ATENOLOL [Concomitant]
  3. DIIOVAN ^CIBA-GEIGY^ (VALSARTAN) [Concomitant]
  4. POTASSIUM CHLORIDE [Concomitant]
  5. LIPITOR [Concomitant]
  6. METFORMIN HCL [Concomitant]
  7. ACTOS [Concomitant]
  8. ACETYLSALICYLIC ACID SRT [Concomitant]

REACTIONS (6)
  - CARDIAC ARREST [None]
  - GENERAL PHYSICAL HEALTH DETERIORATION [None]
  - HAEMODIALYSIS [None]
  - PANCREATIC MASS [None]
  - RENAL FAILURE ACUTE [None]
  - RESPIRATORY FAILURE [None]
